FAERS Safety Report 19085077 (Version 1)
Quarter: 2021Q2

REPORT INFORMATION
  Report Type: Spontaneous
  Country: CA (occurrence: CA)
  Receive Date: 20210401
  Receipt Date: 20210401
  Transmission Date: 20210717
  Serious: Yes (Death)
  Sender: FDA-Public Use
  Company Number: CA-CUMBERLAND-2021-CA-000001

PATIENT
  Age: 17 Year
  Sex: Female

DRUGS (14)
  1. VANCOMYCIN [Concomitant]
     Active Substance: VANCOMYCIN
  2. DIMENHYDRINATE. [Concomitant]
     Active Substance: DIMENHYDRINATE
  3. LORAZEPAM. [Concomitant]
     Active Substance: LORAZEPAM
  4. PHENYTOIN. [Concomitant]
     Active Substance: PHENYTOIN
  5. HYPERTONIC SALINE [Concomitant]
     Active Substance: SODIUM CHLORIDE
  6. METOCLOPRAMIDE. [Concomitant]
     Active Substance: METOCLOPRAMIDE
  7. NOREPINEPHRINE. [Concomitant]
     Active Substance: NOREPINEPHRINE
  8. CEFTRIAXONE. [Concomitant]
     Active Substance: CEFTRIAXONE
  9. DIPHENHYDRAMINE. [Concomitant]
     Active Substance: DIPHENHYDRAMINE
  10. ACETADOTE [Suspect]
     Active Substance: ACETYLCYSTEINE
     Dosage: TOTAL DOSE 60000MG
  11. ONDANSETRON [Concomitant]
     Active Substance: ONDANSETRON
  12. MANNITOL. [Concomitant]
     Active Substance: MANNITOL
  13. VASOPRESSIN. [Concomitant]
     Active Substance: VASOPRESSIN
  14. PROPOFOL. [Concomitant]
     Active Substance: PROPOFOL

REACTIONS (9)
  - Rash maculo-papular [Unknown]
  - Confusional state [Unknown]
  - Agitation [Not Recovered/Not Resolved]
  - Hyperhidrosis [Unknown]
  - Seizure [Unknown]
  - Product administration error [Not Recovered/Not Resolved]
  - Flushing [Unknown]
  - Brain oedema [Fatal]
  - Brain death [Fatal]
